FAERS Safety Report 9554008 (Version 1)
Quarter: 2013Q3

REPORT INFORMATION
  Report Type: Spontaneous
  Country: US (occurrence: None)
  Receive Date: 20130815
  Receipt Date: 20130815
  Transmission Date: 20140515
  Serious: Yes (Other)
  Sender: FDA-Public Use
  Company Number: ADR-2013-00214

PATIENT
  Age: 53 Year
  Sex: Female

DRUGS (1)
  1. LIORESAL [Suspect]
     Dosage: 310 MCG/DAY

REACTIONS (5)
  - Influenza like illness [None]
  - Injury [None]
  - Sedation [None]
  - Implant site pain [None]
  - Implant site infection [None]
